FAERS Safety Report 15891223 (Version 1)
Quarter: 2019Q1

REPORT INFORMATION
  Report Type: Spontaneous
  Country: US (occurrence: US)
  Receive Date: 20190130
  Receipt Date: 20190130
  Transmission Date: 20190417
  Serious: No
  Sender: FDA-Public Use
  Company Number: US-ALLERGAN-1804379US

PATIENT
  Sex: Female

DRUGS (2)
  1. VIIBRYD [Suspect]
     Active Substance: VILAZODONE HYDROCHLORIDE
     Indication: MIGRAINE
     Dosage: 20 MG, UNK
     Route: 048
     Dates: end: 20180119
  2. VIIBRYD [Suspect]
     Active Substance: VILAZODONE HYDROCHLORIDE
     Dosage: 40 MG, UNK
     Route: 048

REACTIONS (8)
  - Intentional product use issue [Unknown]
  - Visual field defect [Recovered/Resolved]
  - Auditory disorder [Recovered/Resolved]
  - Product dose omission [Unknown]
  - Product use in unapproved indication [Unknown]
  - Feeling abnormal [Recovered/Resolved]
  - Discontinued product administered [Unknown]
  - Pruritus generalised [Recovered/Resolved]

NARRATIVE: CASE EVENT DATE: 201801
